FAERS Safety Report 9733851 (Version 2)
Quarter: 2014Q1

REPORT INFORMATION
  Report Type: Spontaneous
  Country: US (occurrence: US)
  Receive Date: 20131205
  Receipt Date: 20140224
  Transmission Date: 20141002
  Serious: No
  Sender: FDA-Public Use
  Company Number: US-PFIZER INC-2013345675

PATIENT
  Sex: Male

DRUGS (4)
  1. RAPAMUNE [Suspect]
     Dosage: UNK
  2. BUMEX [Suspect]
     Dosage: UNK
  3. PROGRAF [Concomitant]
     Dosage: UNK
  4. PREDNISONE [Concomitant]
     Dosage: UNK

REACTIONS (3)
  - Cough [Unknown]
  - Sleep disorder [Unknown]
  - Urine analysis abnormal [Unknown]
